FAERS Safety Report 5162940-8 (Version None)
Quarter: 2006Q4

REPORT INFORMATION
  Report Type: 
  Country: None (occurrence: None)
  Receive Date: 20061201
  Receipt Date: 20061123
  Transmission Date: 20070319
  Serious: Yes (Other)
  Sender: FDA-Public Use
  Company Number: GR-ROCHE-472569

PATIENT
  Sex: Female

DRUGS (2)
  1. BONIVA [Suspect]
     Indication: OSTEOPOROSIS
     Dosage: 150 MG PER MONTH.
     Route: 048
     Dates: start: 20060615
  2. CALCIUM SUPPLEMENTS [Concomitant]

REACTIONS (2)
  - NAIL GROWTH ABNORMAL [None]
  - ONYCHOCLASIS [None]
